FAERS Safety Report 8193356 (Version 3)
Quarter: 2013Q1

REPORT INFORMATION
  Report Type: Report from Study
  Country: SE (occurrence: SE)
  Receive Date: 20111021
  Receipt Date: 20130218
  Transmission Date: 20140127
  Serious: Yes (Hospitalization)
  Sender: FDA-Public Use
  Company Number: SE-ABBOTT-11P-150-0866042-00

PATIENT
  Age: 44 Year
  Sex: Female
  Weight: 72 kg

DRUGS (24)
  1. ZEMPLAR [Suspect]
     Indication: RENAL FAILURE CHRONIC
     Route: 048
     Dates: start: 20110201
  2. KALEORID [Concomitant]
     Indication: BLOOD POTASSIUM DECREASED
     Route: 048
     Dates: start: 20081122
  3. NOVORAPID [Concomitant]
     Indication: DIABETES MELLITUS
     Route: 058
     Dates: start: 20061205
  4. INSULATARD [Concomitant]
     Indication: DIABETES MELLITUS
     Dosage: 25 IE + 0 + 10 IE
     Route: 058
     Dates: start: 20061205
  5. ALLOPURINOL [Concomitant]
     Indication: PROPHYLAXIS
     Route: 048
     Dates: start: 20061205
  6. ALLOPURINOL [Concomitant]
     Indication: GOUT
  7. LIPITOR [Concomitant]
     Indication: HYPERCHOLESTEROLAEMIA
     Route: 048
     Dates: start: 20091217
  8. EMGESAN [Concomitant]
     Indication: VASOSPASM
     Route: 048
     Dates: start: 20090811
  9. FURIX [Concomitant]
     Indication: DIURETIC THERAPY
     Dosage: SWITCH TO ANOTHER BRAND
     Route: 048
     Dates: start: 20110914
  10. FURIX [Concomitant]
     Indication: OEDEMA
  11. OMEPRAZOL TEVA [Concomitant]
     Indication: GASTRIC ULCER
     Dates: start: 20110914
  12. OMEPRAZOL TEVA [Concomitant]
     Indication: PROPHYLAXIS
  13. LAKTULOS [Concomitant]
     Indication: CONSTIPATION
     Route: 048
  14. CILAXORAL [Concomitant]
     Indication: CONSTIPATION
     Route: 048
  15. INOLAXOL [Concomitant]
     Indication: CONSTIPATION
     Route: 048
  16. SYMBICORT [Concomitant]
     Indication: BRONCHIAL OBSTRUCTION
     Route: 055
  17. BRICANYL [Concomitant]
     Indication: BRONCHIAL OBSTRUCTION
     Route: 055
  18. CITODON [Concomitant]
     Indication: PAIN
     Dosage: 1 IN 1 D, AS NEEDED
     Route: 048
  19. PARAFLEX [Concomitant]
     Indication: HYPOTONIA
     Dosage: 1 IN 1 D, AS NEEDED
     Route: 048
  20. PARAFLEX [Concomitant]
     Indication: PAIN
  21. SCHERIPROCT [Concomitant]
     Indication: HAEMORRHOIDS
  22. FUROSEMID HEXAL [Concomitant]
     Indication: DIURETIC THERAPY
     Dosage: SWTICH TO ANOTHER BRAND
     Dates: start: 20071115, end: 201109
  23. OMEPRAZOL BLUEFISH [Concomitant]
     Indication: GASTRIC ULCER
     Dosage: SWITCH TO ANOTHER BRAND
     Dates: start: 20090811, end: 201109
  24. OMEPRAZOL BLUEFISH [Concomitant]
     Indication: PROPHYLAXIS

REACTIONS (4)
  - Diverticulitis [Recovering/Resolving]
  - Aphagia [Unknown]
  - Fatigue [Unknown]
  - Diverticulitis [Unknown]
